FAERS Safety Report 22006559 (Version 1)
Quarter: 2023Q1

REPORT INFORMATION
  Report Type: Report from Study
  Country: US (occurrence: US)
  Receive Date: 20230217
  Receipt Date: 20230217
  Transmission Date: 20230418
  Serious: Yes (Other)
  Sender: FDA-Public Use
  Company Number: US-002147023-NVSC2023US032133

PATIENT
  Sex: Female

DRUGS (1)
  1. COSENTYX [Suspect]
     Active Substance: SECUKINUMAB
     Indication: Psoriasis
     Dosage: 300 MG (WEEK 0,1,2,3,4 AND EVERY 4 WEEKS THEREAFTER)
     Route: 058

REACTIONS (2)
  - Gastric ulcer [Unknown]
  - Device difficult to use [Unknown]
